FAERS Safety Report 11532592 (Version 2)
Quarter: 2015Q3

REPORT INFORMATION
  Report Type: Spontaneous
  Country: AR (occurrence: AR)
  Receive Date: 20150921
  Receipt Date: 20150922
  Transmission Date: 20151125
  Serious: Yes (Death)
  Sender: FDA-Public Use
  Company Number: PHHY2015AR112726

PATIENT
  Age: 92 Year
  Sex: Female

DRUGS (1)
  1. DIOVAN [Suspect]
     Active Substance: VALSARTAN
     Indication: HYPERTENSION
     Dosage: UNK UNK, IRD (SOMETIMES,WHEN HER BLOOD PRESSURE INCREASED A LOT)
     Route: 065

REACTIONS (3)
  - Blood pressure increased [Unknown]
  - Cardiac disorder [Unknown]
  - Cardiac valve sclerosis [Fatal]
